FAERS Safety Report 15890563 (Version 1)
Quarter: 2019Q1

REPORT INFORMATION
  Report Type: Spontaneous
  Country: BR (occurrence: BR)
  Receive Date: 20190130
  Receipt Date: 20190130
  Transmission Date: 20190417
  Serious: Yes (Other)
  Sender: FDA-Public Use
  Company Number: BR-JNJFOC-20190128386

PATIENT
  Age: 53 Year
  Sex: Female
  Weight: 67 kg

DRUGS (5)
  1. AZATHIOPRINE. [Concomitant]
     Active Substance: AZATHIOPRINE
     Route: 065
  2. ADALIMUMAB [Suspect]
     Active Substance: ADALIMUMAB
     Indication: PRODUCT USED FOR UNKNOWN INDICATION
     Route: 065
     Dates: start: 20150501
  3. THALIDOMIDE [Concomitant]
     Active Substance: THALIDOMIDE
     Route: 065
     Dates: start: 20170515, end: 201710
  4. INFLIXIMAB, RECOMBINANT [Suspect]
     Active Substance: INFLIXIMAB
     Indication: PRODUCT USED FOR UNKNOWN INDICATION
     Route: 042
     Dates: start: 201210
  5. THALIDOMIDE [Concomitant]
     Active Substance: THALIDOMIDE
     Route: 065
     Dates: start: 201801

REACTIONS (12)
  - Intestinal resection [Unknown]
  - Laparotomy [Unknown]
  - Hypothyroidism [Unknown]
  - Systemic candida [Unknown]
  - Abdominal wall abscess [Unknown]
  - Colectomy total [Unknown]
  - Pulmonary embolism [Unknown]
  - Proctectomy [Unknown]
  - Abscess [Unknown]
  - Erythema nodosum [Unknown]
  - Enterocutaneous fistula [Unknown]
  - Abscess [Recovered/Resolved]

NARRATIVE: CASE EVENT DATE: 201304
